FAERS Safety Report 9174728 (Version 2)
Quarter: 2013Q1

REPORT INFORMATION
  Report Type: Spontaneous
  Country: GB (occurrence: None)
  Receive Date: 20130315
  Receipt Date: 20130319
  Transmission Date: 20140127
  Serious: Yes (Other)
  Sender: FDA-Public Use
  Company Number: AUR-APL-2013-02183

PATIENT
  Age: 61 Year
  Sex: Female

DRUGS (2)
  1. ALENDRONIC ACID [Suspect]
     Indication: OSTEOPOROSIS
     Dosage: (70 MG, 1 IN 1 WK), ORAL
     Route: 048
     Dates: start: 20130209, end: 20130210
  2. ADCAL-D3 (LEKOVIT CA) [Concomitant]

REACTIONS (3)
  - Dizziness [None]
  - Malaise [None]
  - Impaired driving ability [None]
